FAERS Safety Report 16464088 (Version 1)
Quarter: 2019Q3

REPORT INFORMATION
  Report Type: Spontaneous
  Country: US (occurrence: US)
  Receive Date: 20190620
  Receipt Date: 20190620
  Transmission Date: 20191004
  Serious: Yes (Other)
  Sender: FDA-Public Use
  Company Number: None

PATIENT
  Age: 20 Year
  Sex: Female
  Weight: 47.7 kg

DRUGS (4)
  1. SEASONIQUE [Concomitant]
     Active Substance: ETHINYL ESTRADIOL\LEVONORGESTREL
  2. CAMRESE [Concomitant]
     Active Substance: ETHINYL ESTRADIOL\LEVONORGESTREL
  3. SEASONIQUE [Suspect]
     Active Substance: ETHINYL ESTRADIOL\LEVONORGESTREL
     Indication: BACTERIAL VAGINOSIS
     Route: 048
     Dates: start: 20180226, end: 20180302
  4. LOESTRIN 1.5/30 [Concomitant]

REACTIONS (2)
  - Bacterial vaginosis [None]
  - Infection [None]

NARRATIVE: CASE EVENT DATE: 20180225
